FAERS Safety Report 5286113-3 (Version None)
Quarter: 2007Q1

REPORT INFORMATION
  Report Type: 
  Country: None (occurrence: None)
  Receive Date: 20070104
  Receipt Date: 20060818
  Transmission Date: 20070707
  Serious: No
  Sender: FDA-Public Use
  Company Number: BDI-008536

PATIENT
  Age: 50 Year
  Sex: Male
  Weight: 72.73 kg

DRUGS (1)
  1. MULTIHANCE [Suspect]
     Indication: NUCLEAR MAGNETIC RESONANCE IMAGING BRAIN
     Dosage: 15 ML ONCE IV
     Route: 042
     Dates: start: 20060817, end: 20060817

REACTIONS (4)
  - INCREASED UPPER AIRWAY SECRETION [None]
  - NAUSEA [None]
  - PALPITATIONS [None]
  - URTICARIA [None]
